FAERS Safety Report 23993655 (Version 1)
Quarter: 2024Q2

REPORT INFORMATION
  Report Type: Spontaneous
  Country: US (occurrence: None)
  Receive Date: 20240618
  Receipt Date: 20240618
  Transmission Date: 20240716
  Serious: Yes (Other)
  Sender: FDA-Public Use
  Company Number: None

PATIENT
  Age: 63 Year
  Sex: Male

DRUGS (11)
  1. AMBRISENTAN [Suspect]
     Active Substance: AMBRISENTAN
     Indication: Pulmonary arterial hypertension
     Dosage: FREQUENCY : DAILY;?
     Route: 048
     Dates: start: 20210125
  2. TADALAFIL [Concomitant]
     Active Substance: TADALAFIL
  3. PULMICORT TURBUHALER [Concomitant]
     Active Substance: BUDESONIDE
  4. HYDROXYUREA [Concomitant]
     Active Substance: HYDROXYUREA
  5. PREDNISONE [Concomitant]
     Active Substance: PREDNISONE
  6. FAMOTODINE [Concomitant]
  7. TORSEMIDE [Concomitant]
     Active Substance: TORSEMIDE
  8. SPIRONOLACTONE [Concomitant]
     Active Substance: SPIRONOLACTONE
  9. DIGOXIN [Concomitant]
     Active Substance: DIGOXIN
  10. ASTELIN [Concomitant]
     Active Substance: AZELASTINE HYDROCHLORIDE
  11. FLONASE [Concomitant]
     Active Substance: FLUTICASONE PROPIONATE

REACTIONS (5)
  - Orthostatic hypotension [None]
  - Asthenia [None]
  - Dizziness [None]
  - Blood electrolytes abnormal [None]
  - Anaemia [None]

NARRATIVE: CASE EVENT DATE: 20240607
